FAERS Safety Report 13330625 (Version 1)
Quarter: 2017Q1

REPORT INFORMATION
  Report Type: Report from Study
  Country: US (occurrence: US)
  Receive Date: 20170314
  Receipt Date: 20170314
  Transmission Date: 20170428
  Serious: Yes (Death)
  Sender: FDA-Public Use
  Company Number: US-ROCHE-1833507

PATIENT
  Age: 77 Year
  Sex: Male
  Weight: 65.83 kg

DRUGS (12)
  1. ESBRIET [Suspect]
     Active Substance: PIRFENIDONE
     Route: 048
     Dates: start: 20160810
  2. METOPROLOL. [Concomitant]
     Active Substance: METOPROLOL
     Indication: BLOOD PRESSURE MEASUREMENT
     Dosage: TAKES 1 TABLET 2 TIMES DAILY ;ONGOING: YES
     Route: 048
  3. ESBRIET [Suspect]
     Active Substance: PIRFENIDONE
     Indication: IDIOPATHIC PULMONARY FIBROSIS
     Dosage: TAKES 3 CAPSULES 3 TIMES DAILY ;ONGOING: YES
     Route: 048
     Dates: start: 20160817
  4. ASPIRIN. [Concomitant]
     Active Substance: ASPIRIN
     Dosage: TAKES 1 TABLET DAILY ;ONGOING: YES
     Route: 048
  5. PEPCID [Concomitant]
     Active Substance: FAMOTIDINE
     Dosage: TAKES UNK DOSE AS NEEDED FOR STOMACH;ONGOING: YES
     Route: 048
  6. SALEX (UNITED STATES) [Concomitant]
     Indication: UPPER-AIRWAY COUGH SYNDROME
     Dosage: TAKES UNKNOWN DOSE AS NEEDED;ONGOING: YES
     Route: 045
  7. ATORVASTATIN [Concomitant]
     Active Substance: ATORVASTATIN
     Indication: BLOOD CHOLESTEROL
     Dosage: TAKES 1 TAB EACH EVENING AT BEDTIME ;ONGOING:YES
     Route: 048
  8. ZOLPIDEM [Concomitant]
     Active Substance: ZOLPIDEM\ZOLPIDEM TARTRATE
     Dosage: TAKES 1 TABLET EACH NIGHT AT BEDTIME AS SLEEP AID?ONGOING: YES
     Route: 048
  9. ESBRIET [Suspect]
     Active Substance: PIRFENIDONE
     Route: 048
     Dates: start: 20161122
  10. XANAX [Concomitant]
     Active Substance: ALPRAZOLAM
     Indication: ANXIETY
     Dosage: TAKES 1 TABLET EVERY 12 HOURS; ONGOING: YES
     Route: 048
  11. TAMSULOSIN [Concomitant]
     Active Substance: TAMSULOSIN
     Dosage: TAKES 1 TAB EACH EVENING AT BEDTIME ;ONGOING: YES
     Route: 048
  12. TYLENOL [Concomitant]
     Active Substance: ACETAMINOPHEN
     Indication: PAIN
     Dosage: TAKES UNK DOSE AS NEEDED FOR PAIN ;ONGOING: YES
     Route: 048

REACTIONS (2)
  - Fatigue [Not Recovered/Not Resolved]
  - Cardio-respiratory arrest [Fatal]

NARRATIVE: CASE EVENT DATE: 20160914
